FAERS Safety Report 9883055 (Version 1)
Quarter: 2014Q1

REPORT INFORMATION
  Report Type: Spontaneous
  Country: US (occurrence: US)
  Receive Date: 20140208
  Receipt Date: 20140208
  Transmission Date: 20141002
  Serious: No
  Sender: FDA-Public Use
  Company Number: US-B.I. PHARMACEUTICALS,INC./RIDGEFIELD-2014-BI-04957BP

PATIENT
  Age: 55 Year
  Sex: Male

DRUGS (4)
  1. AGGRENOX [Suspect]
     Indication: ISCHAEMIC HEART DISEASE PROPHYLAXIS
     Dosage: STRENGTH: 25 MG / 200 MG; DAILY DOSE: 50 MG/400MG
     Route: 048
     Dates: start: 20140203
  2. COVERSYL [Concomitant]
     Indication: HYPERTENSION
     Dates: start: 2004
  3. PMS-INDAPAMIDE [Concomitant]
     Indication: FLUID RETENTION
     Dates: start: 2004
  4. ROSUVASTATIN [Concomitant]
     Indication: BLOOD CHOLESTEROL INCREASED
     Dates: start: 2004

REACTIONS (2)
  - Headache [Not Recovered/Not Resolved]
  - Abdominal discomfort [Not Recovered/Not Resolved]
